FAERS Safety Report 9769608 (Version 10)
Quarter: 2014Q3

REPORT INFORMATION
  Report Type: Report from Study
  Country: US (occurrence: US)
  Receive Date: 20131218
  Receipt Date: 20140917
  Transmission Date: 20150326
  Serious: Yes (Hospitalization)
  Sender: FDA-Public Use
  Company Number: US-JNJFOC-20131207788

PATIENT
  Age: 17 Year
  Sex: Female
  Weight: 39 kg

DRUGS (2)
  1. REMICADE [Suspect]
     Active Substance: INFLIXIMAB
     Indication: CROHN^S DISEASE
     Route: 042
     Dates: start: 20090615, end: 20121003
  2. PREDNISONE. [Concomitant]
     Active Substance: PREDNISONE
     Route: 065

REACTIONS (4)
  - Crohn^s disease [Recovered/Resolved]
  - Ileal stenosis [Recovered/Resolved]
  - Weight gain poor [Recovered/Resolved]
  - Weight decreased [Recovered/Resolved]

NARRATIVE: CASE EVENT DATE: 20131113
